FAERS Safety Report 5306195-X (Version None)
Quarter: 2007Q2

REPORT INFORMATION
  Report Type: 
  Country: None (occurrence: None)
  Receive Date: 20070424
  Receipt Date: 20070416
  Transmission Date: 20071010
  Serious: Yes (Hospitalization)
  Sender: FDA-Public Use
  Company Number: GB-ROCHE-493070

PATIENT
  Age: 53 Year
  Sex: Male
  Weight: 65.1 kg

DRUGS (4)
  1. CAPECITABINE [Suspect]
     Dosage: GIVEN  SPLIT IN TWO DOSES FOR 14 DAYS FOLLOWED BY A WEEK REST (3-WEEK-CYCLE).
     Route: 048
     Dates: start: 20031219
  2. CAPECITABINE [Suspect]
     Dosage: GIVEN SPLIT IN TWO DOSES DAILY FOR FOURTEEN DAYS FOLLOWED BY A WEEK REST (THREE-WEEK-CYCLE).
     Route: 048
     Dates: start: 20031031, end: 20031120
  3. GEMCITABINE HCL [Suspect]
     Dosage: GIVEN ON DAY 1+8 OF A 3-WEEK-CYCLE.
     Route: 042
     Dates: start: 20031219, end: 20031219
  4. GEMCITABINE HCL [Suspect]
     Route: 042
     Dates: start: 20031128, end: 20031128

REACTIONS (3)
  - DEEP VEIN THROMBOSIS [None]
  - HAEMATEMESIS [None]
  - PLEURAL EFFUSION [None]
